FAERS Safety Report 9498421 (Version 3)
Quarter: 2013Q4

REPORT INFORMATION
  Report Type: Spontaneous
  Country: US (occurrence: US)
  Receive Date: 20130904
  Receipt Date: 20131022
  Transmission Date: 20140711
  Serious: Yes (Death, Life-Threatening, Hospitalization, Other)
  Sender: FDA-Public Use
  Company Number: US-GLAXOSMITHKLINE-A1039708A

PATIENT
  Age: 56 Year
  Sex: Female

DRUGS (25)
  1. VOTRIENT [Suspect]
     Indication: ALVEOLAR RHABDOMYOSARCOMA
     Dosage: 800MG PER DAY
     Route: 048
     Dates: start: 201306, end: 20130812
  2. CHEMOTHERAPY [Concomitant]
     Indication: ALVEOLAR RHABDOMYOSARCOMA
  3. ANTICOAGULANT [Concomitant]
     Indication: DEEP VEIN THROMBOSIS
     Dates: end: 20130812
  4. AMITRIPTYLINE [Concomitant]
  5. FIORINAL [Concomitant]
  6. CENTRUM [Concomitant]
  7. CYANOCOBALAMIN [Concomitant]
  8. DIPHENOXYLATE [Concomitant]
  9. HYDROMORPHONE [Concomitant]
  10. MAGNESIUM [Concomitant]
  11. METOCLOPRAMIDE [Concomitant]
  12. NEXIUM [Concomitant]
  13. OXYCODONE [Concomitant]
  14. OXYCONTIN [Concomitant]
  15. KCL [Concomitant]
  16. PROCHLORPERAZINE [Concomitant]
  17. SUMATRIPTAN [Concomitant]
  18. SYNTHROID [Concomitant]
  19. ZOLPIDEM [Concomitant]
  20. LOVENOX [Concomitant]
  21. CENTRUM SILVER [Concomitant]
  22. KLONOPIN [Concomitant]
  23. DEXAMETHASONE [Concomitant]
  24. DEPAKOTE [Concomitant]
  25. BUTALBITAL + ACETAMINOPHEN + CAFFEINE [Concomitant]

REACTIONS (20)
  - Disease progression [Fatal]
  - Pneumonia [Recovering/Resolving]
  - Respiratory failure [Recovering/Resolving]
  - Pulmonary haemorrhage [Recovering/Resolving]
  - Pneumonia bacterial [Unknown]
  - Metastases to central nervous system [Unknown]
  - Pain [Unknown]
  - Liver function test abnormal [Unknown]
  - Pyrexia [Unknown]
  - Delusion [Unknown]
  - Dyspnoea [Recovering/Resolving]
  - Thrombocytopenia [Unknown]
  - Pulmonary alveolar haemorrhage [Unknown]
  - Hypoaesthesia [Unknown]
  - Hospice care [Unknown]
  - Sepsis [Unknown]
  - Haemorrhagic anaemia [Unknown]
  - Respiratory distress [Unknown]
  - Generalised oedema [Unknown]
  - Mental status changes [Unknown]
